FAERS Safety Report 8113901-8 (Version None)
Quarter: 2012Q1

REPORT INFORMATION
  Report Type: 
  Country: None (occurrence: None)
  Receive Date: 20120203
  Receipt Date: 20120125
  Transmission Date: 20120608
  Serious: Yes (Other)
  Sender: FDA-Public Use
  Company Number: US-ROCHE-783893

PATIENT
  Sex: Female
  Weight: 44.492 kg

DRUGS (1)
  1. ACCUTANE [Suspect]
     Indication: ACNE
     Route: 065
     Dates: start: 19970101, end: 19970501

REACTIONS (8)
  - ANAL FISSURE [None]
  - DEPRESSION [None]
  - COLITIS ULCERATIVE [None]
  - CROHN'S DISEASE [None]
  - FISTULA [None]
  - INFLAMMATORY BOWEL DISEASE [None]
  - PERIRECTAL ABSCESS [None]
  - STRESS [None]
